FAERS Safety Report 9104102 (Version 1)
Quarter: 2013Q1

REPORT INFORMATION
  Report Type: Spontaneous
  Country: US (occurrence: US)
  Receive Date: 20130219
  Receipt Date: 20130219
  Transmission Date: 20140127
  Serious: No
  Sender: FDA-Public Use
  Company Number: US-SANOFI-AVENTIS-2012SA018337

PATIENT
  Sex: Male

DRUGS (3)
  1. GLYBURIDE [Suspect]
     Route: 065
     Dates: end: 2012
  2. METFORMIN [Suspect]
     Route: 065
     Dates: end: 2012
  3. JANUVIA [Suspect]
     Route: 065
     Dates: end: 2012

REACTIONS (1)
  - Rash [Unknown]
